FAERS Safety Report 15805227 (Version 1)
Quarter: 2019Q1

REPORT INFORMATION
  Report Type: Spontaneous
  Country: PT (occurrence: PT)
  Receive Date: 20190110
  Receipt Date: 20190110
  Transmission Date: 20190417
  Serious: Yes (Other)
  Sender: FDA-Public Use
  Company Number: PT-TEVA-2019-PT-996904

PATIENT
  Age: 19 Year
  Sex: Male

DRUGS (3)
  1. LEPICORTINOLO [Suspect]
     Active Substance: PREDNISOLONE
     Route: 048
  2. MAXILASE [Suspect]
     Active Substance: PANCRELIPASE
     Route: 048
  3. AZITHROMYCIN ANHYDROUS. [Suspect]
     Active Substance: AZITHROMYCIN ANHYDROUS
     Route: 048

REACTIONS (2)
  - Respiratory distress [Recovered/Resolved]
  - Angioedema [Recovered/Resolved]
